FAERS Safety Report 9304054 (Version 1)
Quarter: 2013Q1

REPORT INFORMATION
  Report Type: Spontaneous
  Country: US (occurrence: None)
  Receive Date: 20130125
  Receipt Date: 20130125
  Transmission Date: 20140127
  Serious: Yes (Hospitalization, Other)
  Sender: FDA-Public Use
  Company Number: ADR-2012-01359

PATIENT
  Age: 64 Year
  Sex: Female

DRUGS (2)
  1. LIORESAL INTRATHECAL (BACLOFEN INJECTION) [Suspect]
     Indication: MUSCLE SPASTICITY
  2. LIORESAL INTRATHECAL (BACLOFEN INJECTION) [Suspect]
     Indication: MULTIPLE SCLEROSIS

REACTIONS (6)
  - Fatigue [None]
  - Staphylococcal infection [None]
  - Device related infection [None]
  - Deep vein thrombosis [None]
  - Pleural effusion [None]
  - Wound infection [None]
